FAERS Safety Report 7623703-4 (Version None)
Quarter: 2011Q3

REPORT INFORMATION
  Report Type: 
  Country: None (occurrence: None)
  Receive Date: 20110720
  Receipt Date: 20101021
  Transmission Date: 20111222
  Serious: Yes (Other)
  Sender: FDA-Public Use
  Company Number: US-GLAXOSMITHKLINE-A0888749A

PATIENT
  Sex: Male
  Weight: 109.5 kg

DRUGS (9)
  1. LISINOPRIL [Concomitant]
  2. METFORMIN HCL [Concomitant]
  3. SPIRONOLACTONE [Concomitant]
     Indication: BLOOD ALDOSTERONE INCREASED
  4. AVANDAMET [Suspect]
     Indication: DIABETES MELLITUS
     Route: 048
     Dates: start: 20040826, end: 20051002
  5. GLIMEPIRIDE [Concomitant]
  6. AVANDIA [Suspect]
     Indication: DIABETES MELLITUS
     Dosage: 8MG PER DAY
     Route: 048
     Dates: end: 20100726
  7. GABAPENTIN [Concomitant]
  8. AVANDARYL [Suspect]
     Indication: DIABETES MELLITUS
     Route: 048
     Dates: start: 20061127
  9. JANUVIA [Concomitant]

REACTIONS (2)
  - MYOCARDIAL ISCHAEMIA [None]
  - ARTERIOSCLEROSIS CORONARY ARTERY [None]
